FAERS Safety Report 9618379 (Version 3)
Quarter: 2013Q4

REPORT INFORMATION
  Report Type: Report from Study
  Country: JP (occurrence: JP)
  Receive Date: 20131014
  Receipt Date: 20131122
  Transmission Date: 20140711
  Serious: Yes (Hospitalization)
  Sender: FDA-Public Use
  Company Number: JP-009507513-1310JPN005210

PATIENT
  Age: 64 Year
  Sex: Male
  Weight: 60 kg

DRUGS (12)
  1. ASENAPINE MALEATE-SCHIZOPHRENIA [Suspect]
     Indication: SCHIZOPHRENIA
     Dosage: 5 MG, BID
     Route: 060
     Dates: start: 20130712
  2. QUETIAPINE FUMARATE [Suspect]
     Indication: SCHIZOPHRENIA
     Dosage: 600 MG, QD, FORMULATION: POR
     Route: 048
     Dates: start: 20130502, end: 20131006
  3. QUETIAPINE FUMARATE [Suspect]
     Dosage: 400 MG, QD
     Route: 048
     Dates: start: 20131007
  4. BICAMOL [Suspect]
     Indication: EXTRAPYRAMIDAL DISORDER
     Dosage: 2 MG, QD
     Route: 048
     Dates: start: 20130316, end: 20131003
  5. INVEGA [Suspect]
     Indication: SCHIZOPHRENIA
     Dosage: 3 MG, QD
     Route: 048
     Dates: start: 20130316
  6. NELUROLEN [Concomitant]
     Indication: INSOMNIA
     Dosage: 10 MG, QD, FORMULATION: POR
     Route: 048
     Dates: start: 20130831
  7. ROZEREM [Concomitant]
     Indication: INSOMNIA
     Dosage: 8 MG, QD
     Route: 048
     Dates: start: 20130309
  8. TAKEPRON [Concomitant]
     Indication: DUODENAL ULCER
     Dosage: 15 MG, QD, FORMULATION: POR
     Route: 048
     Dates: start: 20130505
  9. MIGSIS [Concomitant]
     Indication: MIGRAINE
     Dosage: 10 MG, QD
     Route: 048
     Dates: start: 20130309
  10. SENIRAN [Concomitant]
     Indication: AGITATION
     Dosage: 5 MG, QD, FORMULATION: POR
     Route: 048
     Dates: start: 20130701
  11. SENNOSIDES [Concomitant]
     Indication: CONSTIPATION
     Dosage: 24 MG, PRN
     Route: 048
     Dates: start: 20130508
  12. LORAMET [Concomitant]
     Indication: INSOMNIA
     Dosage: 1 MG, AS NEEDED
     Route: 048
     Dates: start: 20130501

REACTIONS (1)
  - Intestinal obstruction [Recovered/Resolved]
